FAERS Safety Report 5639081-6 (Version None)
Quarter: 2008Q1

REPORT INFORMATION
  Report Type: 
  Country: None (occurrence: None)
  Receive Date: 20080226
  Receipt Date: 20080222
  Transmission Date: 20080703
  Serious: Yes (Death, Hospitalization, Other)
  Sender: FDA-Public Use
  Company Number: PHHY2008JP00891

PATIENT
  Age: 70 Year
  Sex: Female
  Weight: 64 kg

DRUGS (8)
  1. ZOMETA [Suspect]
     Indication: METASTASES TO BONE
     Dosage: 4 MG/DAY
     Route: 042
     Dates: start: 20060829, end: 20070731
  2. TAXOTERE [Concomitant]
     Dosage: 125.6MG/M2
     Route: 042
     Dates: start: 20070306, end: 20071112
  3. DECADRON [Concomitant]
     Dosage: 8 MG/DAY
     Route: 042
     Dates: start: 20070306, end: 20071112
  4. DECADRON [Concomitant]
     Dosage: 8 MG/DAY
     Route: 048
     Dates: start: 20070303, end: 20070825
  5. ZANTAC 150 [Concomitant]
     Dosage: 50 MG/DAY
     Route: 042
     Dates: start: 20070306, end: 20071112
  6. NOVAMIN [Concomitant]
     Dosage: 15 MG/ DAY
     Route: 048
     Dates: start: 20070306, end: 20070825
  7. FAMOTIDINE [Concomitant]
  8. KYTRIL [Concomitant]
     Dosage: 1 MG/DAY
     Route: 048
     Dates: start: 20070327, end: 20070825

REACTIONS (9)
  - GINGIVITIS [None]
  - HAEMATOCRIT DECREASED [None]
  - HAEMOGLOBIN DECREASED [None]
  - HEPATIC FAILURE [None]
  - METASTASES TO LIVER [None]
  - ORAL SURGERY [None]
  - OSTEOMYELITIS [None]
  - RED BLOOD CELL COUNT DECREASED [None]
  - TOOTH EXTRACTION [None]
